FAERS Safety Report 7314201-6 (Version None)
Quarter: 2011Q1

REPORT INFORMATION
  Report Type: 
  Country: None (occurrence: None)
  Receive Date: 20110225
  Receipt Date: 20100608
  Transmission Date: 20110831
  Serious: No
  Sender: FDA-Public Use
  Company Number: US-MYLANLABS-2010S1010080

PATIENT
  Age: 32 Year
  Sex: Female

DRUGS (5)
  1. AMNESTEEM [Suspect]
     Route: 048
     Dates: start: 20100301, end: 20100501
  2. AMNESTEEM [Suspect]
     Route: 048
     Dates: start: 20100501, end: 20100520
  3. AMNESTEEM [Suspect]
     Indication: ACNE CYSTIC
     Route: 048
     Dates: start: 20100201, end: 20100301
  4. AMNESTEEM [Suspect]
     Route: 048
     Dates: start: 20100401, end: 20100501
  5. AMNESTEEM [Suspect]
     Route: 048
     Dates: start: 20100201, end: 20100301

REACTIONS (3)
  - SCIATICA [None]
  - INSOMNIA [None]
  - MYALGIA [None]
